FAERS Safety Report 9789809 (Version 1)
Quarter: 2013Q4

REPORT INFORMATION
  Report Type: Spontaneous
  Country: US (occurrence: None)
  Receive Date: 20131230
  Receipt Date: 20131230
  Transmission Date: 20140711
  Serious: Yes (Death, Life-Threatening, Hospitalization)
  Sender: FDA-Public Use
  Company Number: None

PATIENT
  Age: 79 Year
  Sex: Male
  Weight: 97.98 kg

DRUGS (1)
  1. XELODA [Suspect]
     Indication: CHEMOTHERAPY
     Dosage: 4 TABLETS A.M./ 5 TABLETS P.M. TWICE DAILY TAKEN BY MOUTH
     Route: 048
     Dates: start: 20131119, end: 20131203

REACTIONS (13)
  - Stomatitis [None]
  - Diarrhoea [None]
  - Asthenia [None]
  - Pharyngeal ulceration [None]
  - Pneumonia aspiration [None]
  - Cystitis bacterial [None]
  - Cystitis [None]
  - Fungal infection [None]
  - White blood cell count decreased [None]
  - Dyspnoea [None]
  - Dialysis [None]
  - Vomiting [None]
  - Disorientation [None]
